FAERS Safety Report 18926590 (Version 1)
Quarter: 2021Q1

REPORT INFORMATION
  Report Type: Spontaneous
  Country: US (occurrence: US)
  Receive Date: 20210222
  Receipt Date: 20210222
  Transmission Date: 20210420
  Serious: Yes (Hospitalization)
  Sender: FDA-Public Use
  Company Number: None

PATIENT
  Sex: Female

DRUGS (25)
  1. METHOCARBAM [Concomitant]
     Active Substance: METHOCARBAMOL
  2. ROPINIROLE. [Concomitant]
     Active Substance: ROPINIROLE
  3. CELECOXIB. [Concomitant]
     Active Substance: CELECOXIB
  4. HYDROCORTISO CRE [Concomitant]
  5. LO LOESTRIN FE [Concomitant]
     Active Substance: ETHINYL ESTRADIOL\NORETHINDRONE ACETATE
  6. SPRAVATO [Suspect]
     Active Substance: ESKETAMINE
     Indication: MAJOR DEPRESSION
     Route: 045
     Dates: start: 20200514
  7. DOXYCYC MONO [Concomitant]
     Active Substance: DOXYCYCLINE
  8. HYDROCO/APAP [Concomitant]
     Active Substance: ACETAMINOPHEN\HYDROCODONE
  9. METHYLPRED [Concomitant]
     Active Substance: METHYLPREDNISOLONE
  10. PREDNISONE. [Concomitant]
     Active Substance: PREDNISONE
  11. FAMOTIDINE. [Concomitant]
     Active Substance: FAMOTIDINE
  12. MOTEGRITY [Concomitant]
     Active Substance: PRUCALOPRIDE SUCCINATE
  13. VANCOMYCIN [Concomitant]
     Active Substance: VANCOMYCIN
  14. VITAMIN D [Concomitant]
     Active Substance: VITAMIN D NOS
  15. DOK [Concomitant]
     Active Substance: DOCUSATE SODIUM
  16. A?HYDROCORT [Concomitant]
     Active Substance: HYDROCORTISONE SODIUM SUCCINATE
  17. DEXTROAMPHET SACCHARAT, AMPHET ASPARTATE, DEXTROAMPHET SULFATE AND AMPHET SULFAT [Concomitant]
     Active Substance: AMPHETAMINE ASPARTATE\AMPHETAMINE SULFATE\DEXTROAMPHETAMINE SACCHARATE\DEXTROAMPHETAMINE SULFATE
  18. OXYCODONE AND ACETAMINOPHEN [Concomitant]
     Active Substance: ACETAMINOPHEN\OXYCODONE HYDROCHLORIDE
  19. ZENPEP [Concomitant]
     Active Substance: PANCRELIPASE AMYLASE\PANCRELIPASE LIPASE\PANCRELIPASE PROTEASE
  20. AZITHROMYCIN ANHYDROUS. [Concomitant]
     Active Substance: AZITHROMYCIN ANHYDROUS
  21. FLUCONAZOLE. [Concomitant]
     Active Substance: FLUCONAZOLE
  22. METRONIDAZOL [Concomitant]
     Active Substance: METRONIDAZOLE
  23. BUPREN/NALOX [Concomitant]
     Active Substance: BUPRENORPHINE\NALOXONE
  24. ESCITALOPRAM [Concomitant]
     Active Substance: ESCITALOPRAM OXALATE
  25. NEO/POLY/HC [Concomitant]
     Active Substance: HYDROCORTISONE\NEOMYCIN\POLYMYXIN B SULFATE

REACTIONS (1)
  - Infection [None]
